FAERS Safety Report 9513975 (Version 6)
Quarter: 2016Q1

REPORT INFORMATION
  Report Type: Spontaneous
  Country: US (occurrence: US)
  Receive Date: 20130910
  Receipt Date: 20160105
  Transmission Date: 20160526
  Serious: Yes (Life-Threatening, Hospitalization, Congenital Anomaly, Other)
  Sender: FDA-Public Use
  Company Number: US-ELI_LILLY_AND_COMPANY-US201309001405

PATIENT
  Age: 15 Year
  Sex: Female

DRUGS (4)
  1. PROZAC [Suspect]
     Active Substance: FLUOXETINE HYDROCHLORIDE
     Indication: DEPRESSION
     Dosage: 1 DF, UNKNOWN
     Route: 064
  2. PRENATAL VITAMINS                  /08195401/ [Concomitant]
     Indication: PRODUCT USED FOR UNKNOWN INDICATION
     Route: 065
  3. PROZAC [Suspect]
     Active Substance: FLUOXETINE HYDROCHLORIDE
     Dosage: 20 MG, QD
     Route: 048
     Dates: start: 20141202, end: 20150108
  4. PROZAC [Suspect]
     Active Substance: FLUOXETINE HYDROCHLORIDE
     Dosage: 10 MG, QD
     Route: 048
     Dates: start: 20141120

REACTIONS (26)
  - Peripheral artery occlusion [Unknown]
  - Tricuspid valve incompetence [Unknown]
  - Foetal exposure during pregnancy [Recovered/Resolved]
  - Aortic dilatation [Unknown]
  - Anencephaly [Unknown]
  - Coarctation of the aorta [Unknown]
  - Menstruation irregular [Unknown]
  - Sinus node dysfunction [Unknown]
  - Atrioventricular septal defect [Unknown]
  - Congenital aortic atresia [Unknown]
  - Gastrooesophageal reflux disease [Unknown]
  - Mitral valve atresia [Unknown]
  - Ventricular hypoplasia [Unknown]
  - Generalised anxiety disorder [Unknown]
  - Congenital heart valve disorder [Unknown]
  - Suicidal ideation [Unknown]
  - Depression [Unknown]
  - Ventricular extrasystoles [Unknown]
  - Congenital tricuspid valve incompetence [Unknown]
  - Congenital tricuspid valve atresia [Unknown]
  - Aortic valve atresia [Unknown]
  - Anxiety [Unknown]
  - Osteochondrosis [Unknown]
  - Premature baby [Unknown]
  - Hypoplastic left heart syndrome [Unknown]
  - Tricuspid valve stenosis [Unknown]

NARRATIVE: CASE EVENT DATE: 20150109
